FAERS Safety Report 24251454 (Version 1)
Quarter: 2024Q3

REPORT INFORMATION
  Report Type: Spontaneous
  Country: JP (occurrence: None)
  Receive Date: 20240826
  Receipt Date: 20240826
  Transmission Date: 20241017
  Serious: Yes (Other)
  Sender: UNICHEM
  Company Number: JP-Unichem Pharmaceuticals (USA) Inc-UCM202408-001040

PATIENT
  Age: 36 Year
  Sex: Female

DRUGS (10)
  1. GUANFACINE [Suspect]
     Active Substance: GUANFACINE
     Indication: Mental disorder
  2. GUANFACINE [Suspect]
     Active Substance: GUANFACINE
  3. GUANFACINE [Suspect]
     Active Substance: GUANFACINE
  4. GUANFACINE [Suspect]
     Active Substance: GUANFACINE
  5. ARIPIPRAZOLE [Suspect]
     Active Substance: ARIPIPRAZOLE
     Indication: Mental disorder
  6. RISPERIDONE [Suspect]
     Active Substance: RISPERIDONE
     Indication: Anxiety
  7. VORTIOXETINE [Concomitant]
     Active Substance: VORTIOXETINE HYDROBROMIDE
     Indication: Anxiety
  8. VORTIOXETINE [Concomitant]
     Active Substance: VORTIOXETINE HYDROBROMIDE
     Indication: Depression
  9. MIANSERIN [Concomitant]
     Active Substance: MIANSERIN
     Indication: Sleep disorder
     Dosage: UNKNOWN
  10. MIRTAZAPINE [Concomitant]
     Active Substance: MIRTAZAPINE
     Indication: Sleep disorder
     Dosage: UNKNOWN

REACTIONS (4)
  - Drug interaction [Unknown]
  - Bradycardia [Recovered/Resolved]
  - Blood triglycerides increased [Unknown]
  - Fatigue [Recovered/Resolved]
